FAERS Safety Report 11856993 (Version 2)
Quarter: 2015Q4

REPORT INFORMATION
  Report Type: Spontaneous
  Country: GB (occurrence: GB)
  Receive Date: 20151221
  Receipt Date: 20151230
  Transmission Date: 20160305
  Serious: Yes (Life-Threatening, Hospitalization, Disabling, Other)
  Sender: FDA-Public Use
  Company Number: GB-009507513-1512GBR009730

PATIENT
  Age: 55 Year
  Sex: Male
  Weight: 106 kg

DRUGS (9)
  1. PEMBROLIZUMAB. [Suspect]
     Active Substance: PEMBROLIZUMAB
     Indication: METASTATIC MALIGNANT MELANOMA
     Dosage: 215 MG, UNK
     Route: 042
     Dates: start: 20151123, end: 20151123
  2. DALTEPARIN SODIUM [Concomitant]
     Active Substance: DALTEPARIN SODIUM
  3. ZOPICLONE [Concomitant]
     Active Substance: ZOPICLONE
  4. RANITIDINE [Concomitant]
     Active Substance: RANITIDINE\RANITIDINE HYDROCHLORIDE
  5. DEXAMETHASONE. [Concomitant]
     Active Substance: DEXAMETHASONE
  6. ACETAMINOPHEN. [Concomitant]
     Active Substance: ACETAMINOPHEN
  7. PEMBROLIZUMAB. [Suspect]
     Active Substance: PEMBROLIZUMAB
     Dosage: 215 UNK, UNK
     Route: 042
     Dates: start: 20151123, end: 20151123
  8. AMLODIPINE [Concomitant]
     Active Substance: AMLODIPINE BESYLATE
  9. IPILIMUMAB [Concomitant]
     Active Substance: IPILIMUMAB
     Dates: start: 20151023

REACTIONS (3)
  - Guillain-Barre syndrome [Unknown]
  - Muscular weakness [Unknown]
  - Forced vital capacity decreased [Unknown]
